FAERS Safety Report 5885846-5 (Version None)
Quarter: 2008Q3

REPORT INFORMATION
  Report Type: 
  Country: None (occurrence: None)
  Receive Date: 20080917
  Receipt Date: 20080915
  Transmission Date: 20090109
  Serious: Yes (Other)
  Sender: FDA-Public Use
  Company Number: DE-BRISTOL-MYERS SQUIBB COMPANY-14277057

PATIENT
  Age: 42 Year
  Sex: Male
  Weight: 80 kg

DRUGS (2)
  1. BARACLUDE [Suspect]
     Indication: HEPATITIS B
     Route: 048
     Dates: start: 20070423
  2. HEPSERA [Suspect]
     Indication: HEPATITIS B
     Dosage: FORMULATION : TABLET.
     Route: 048
     Dates: start: 20030707

REACTIONS (1)
  - PSORIASIS [None]
